FAERS Safety Report 20340301 (Version 6)
Quarter: 2022Q2

REPORT INFORMATION
  Report Type: Spontaneous
  Country: US (occurrence: US)
  Receive Date: 20220117
  Receipt Date: 20220518
  Transmission Date: 20220721
  Serious: Yes (Hospitalization)
  Sender: FDA-Public Use
  Company Number: US-GLAXOSMITHKLINE-US2022AMR006579

PATIENT

DRUGS (1)
  1. ZEJULA [Suspect]
     Active Substance: NIRAPARIB
     Indication: Ovarian cancer
     Dosage: 300 MG, QD
     Route: 048
     Dates: end: 202204

REACTIONS (9)
  - Appendicectomy [Unknown]
  - Contusion [Unknown]
  - Haemoglobin decreased [Unknown]
  - Haematocrit decreased [Unknown]
  - Hypertension [Unknown]
  - Petechiae [Unknown]
  - Dyspnoea [Unknown]
  - Full blood count abnormal [Not Recovered/Not Resolved]
  - Product dose omission issue [Unknown]
